FAERS Safety Report 6449157-1 (Version None)
Quarter: 2009Q4

REPORT INFORMATION
  Report Type: 
  Country: None (occurrence: None)
  Receive Date: 20091120
  Receipt Date: 20091111
  Transmission Date: 20100525
  Serious: Yes (Hospitalization, Disabling)
  Sender: FDA-Public Use
  Company Number: US-MERCK-0911USA02066

PATIENT
  Age: 68 Year
  Sex: Male

DRUGS (10)
  1. INVANZ [Suspect]
     Indication: DECUBITUS ULCER
     Route: 042
     Dates: start: 20090926, end: 20091014
  2. INVANZ [Suspect]
     Indication: OSTEOMYELITIS
     Route: 042
     Dates: start: 20090926, end: 20091014
  3. LASIX [Concomitant]
     Route: 065
  4. CLONIDINE [Concomitant]
     Route: 065
  5. LEXAPRO [Concomitant]
     Route: 065
  6. VITAMIN B COMPLEX [Concomitant]
     Route: 065
  7. LOVENOX [Concomitant]
     Route: 065
  8. LANTUS [Suspect]
     Route: 065
  9. CARVEDILOL [Concomitant]
     Route: 065
  10. HYDRALAZINE [Concomitant]
     Route: 065

REACTIONS (3)
  - HALLUCINATION [None]
  - HYPOGLYCAEMIA [None]
  - MENTAL STATUS CHANGES [None]
